FAERS Safety Report 5118802-5 (Version None)
Quarter: 2006Q4

REPORT INFORMATION
  Report Type: 
  Country: None (occurrence: None)
  Receive Date: 20061002
  Receipt Date: 20060920
  Transmission Date: 20070319
  Serious: Yes (Hospitalization)
  Sender: FDA-Public Use
  Company Number: US-BRISTOL-MYERS SQUIBB COMPANY-13515655

PATIENT
  Age: 73 Year
  Sex: Male
  Weight: 80 kg

DRUGS (4)
  1. ERBITUX [Suspect]
     Indication: COLON CANCER
     Route: 042
     Dates: start: 20060711, end: 20060711
  2. LEUCOVORIN CALCIUM [Suspect]
     Indication: COLON CANCER
     Route: 042
     Dates: start: 20060711, end: 20060711
  3. FLUOROURACIL [Suspect]
     Indication: COLON CANCER
     Route: 042
     Dates: start: 20060711, end: 20060713
  4. OXALIPLATIN [Suspect]
     Indication: COLON CANCER
     Route: 042
     Dates: start: 20060711, end: 20060711

REACTIONS (5)
  - ANOREXIA [None]
  - DEHYDRATION [None]
  - FATIGUE [None]
  - THROMBOSIS [None]
  - TREMOR [None]
